FAERS Safety Report 13939755 (Version 1)
Quarter: 2017Q3

REPORT INFORMATION
  Report Type: Spontaneous
  Country: US (occurrence: US)
  Receive Date: 20170906
  Receipt Date: 20170906
  Transmission Date: 20171127
  Serious: Yes (Other)
  Sender: FDA-Public Use
  Company Number: None

PATIENT
  Age: 88 Year
  Sex: Male
  Weight: 72 kg

DRUGS (7)
  1. MULTIVITAL [Concomitant]
  2. ZYTIGA [Suspect]
     Active Substance: ABIRATERONE ACETATE
     Indication: PROSTATE CANCER
     Route: 048
     Dates: start: 20170306, end: 20170906
  3. TIMOPTIC [Concomitant]
     Active Substance: TIMOLOL MALEATE
  4. TUMS CHEWY [Concomitant]
  5. LUMIGAN [Concomitant]
     Active Substance: BIMATOPROST
  6. PREDNISONE. [Concomitant]
     Active Substance: PREDNISONE
  7. LUPRON DEPOT [Concomitant]
     Active Substance: LEUPROLIDE ACETATE

REACTIONS (1)
  - Disease progression [None]
